FAERS Safety Report 4372402-3 (Version None)
Quarter: 2004Q2

REPORT INFORMATION
  Report Type: 
  Country: None (occurrence: None)
  Receive Date: 20040602
  Receipt Date: 20040517
  Transmission Date: 20050107
  Serious: Yes (Hospitalization)
  Sender: FDA-Public Use
  Company Number: 2004SE02867

PATIENT
  Age: 50 Year
  Sex: Female

DRUGS (2)
  1. ATACAND [Suspect]
     Indication: HYPERTENSION
     Dosage: 16 MG DAILY PO
     Route: 048
     Dates: start: 20040304, end: 20040306
  2. ZESTRIL [Suspect]
     Indication: HYPERTENSION
     Dosage: 20 MG DAILY PO
     Route: 048

REACTIONS (16)
  - ANOREXIA [None]
  - ARTHRALGIA [None]
  - ASTHENIA [None]
  - CHEST PAIN [None]
  - CHROMATURIA [None]
  - COUGH [None]
  - CYST [None]
  - DRUG HYPERSENSITIVITY [None]
  - DYSPNOEA EXERTIONAL [None]
  - HAEMORRHAGIC OVARIAN CYST [None]
  - HAEMORRHOIDS [None]
  - HYPERTENSION [None]
  - HYPOPHONESIS [None]
  - JOINT SWELLING [None]
  - RECTAL HAEMORRHAGE [None]
  - WEIGHT DECREASED [None]
